FAERS Safety Report 19769539 (Version 1)
Quarter: 2021Q3

REPORT INFORMATION
  Report Type: Spontaneous
  Country: US (occurrence: US)
  Receive Date: 20210831
  Receipt Date: 20210831
  Transmission Date: 20211014
  Serious: No
  Sender: FDA-Public Use
  Company Number: US-SA-2021SA286271

PATIENT
  Age: 50 Year
  Sex: Male
  Weight: 86.2 kg

DRUGS (6)
  1. CYCLOSPORINE. [Concomitant]
     Active Substance: CYCLOSPORINE
  2. PFIZER?BIONTECH COVID?19 VACCINE [Concomitant]
     Active Substance: TOZINAMERAN
     Indication: COVID-19 IMMUNISATION
  3. CHILDREN^S FLONASE ALLERGY RELIEF [Concomitant]
  4. DUPIXENT [Suspect]
     Active Substance: DUPILUMAB
     Indication: DERMATITIS ATOPIC
     Dosage: 600 MG, TOTAL
     Route: 058
     Dates: start: 20210819, end: 20210819
  5. ADVIL [Concomitant]
     Active Substance: IBUPROFEN
  6. CETIRIZINE HCL [Concomitant]
     Active Substance: CETIRIZINE HYDROCHLORIDE

REACTIONS (6)
  - Burning sensation [Unknown]
  - Dry skin [Unknown]
  - Skin exfoliation [Unknown]
  - Therapeutic response unexpected [Unknown]
  - Pruritus [Unknown]
  - Dermatitis atopic [Unknown]

NARRATIVE: CASE EVENT DATE: 202108
